FAERS Safety Report 20090704 (Version 1)
Quarter: 2021Q4

REPORT INFORMATION
  Report Type: Spontaneous
  Country: PT (occurrence: PT)
  Receive Date: 20211119
  Receipt Date: 20211119
  Transmission Date: 20220303
  Serious: Yes (Other)
  Sender: FDA-Public Use
  Company Number: PT-GT-20210803

PATIENT
  Age: 55 Year
  Sex: Female

DRUGS (5)
  1. PERINDOPRIL [Interacting]
     Active Substance: PERINDOPRIL
     Indication: Hypertension
     Dosage: UNK
     Route: 048
  2. BISOPROLOL [Interacting]
     Active Substance: BISOPROLOL
     Indication: Anxiety
     Dosage: UNK
     Route: 048
     Dates: start: 20210826
  3. MEXAZOLAM [Interacting]
     Active Substance: MEXAZOLAM
     Indication: Anxiety
     Dosage: 1 DOSAGE FORM, PRN (1 MG/SOS. TOOK 1 DF ON 26-08-2021)
     Route: 048
     Dates: start: 20210826, end: 20210826
  4. ESCITALOPRAM OXALATE [Interacting]
     Active Substance: ESCITALOPRAM OXALATE
     Indication: Anxiety
     Dosage: 1 DOSAGE FORM, QD
     Route: 048
     Dates: start: 20210826, end: 20210830
  5. ATORVASTATIN [Concomitant]
     Active Substance: ATORVASTATIN
     Indication: Hypercholesterolaemia
     Dosage: UNK
     Route: 048

REACTIONS (5)
  - Apathy [Recovering/Resolving]
  - Musculoskeletal stiffness [Recovering/Resolving]
  - Somnolence [Recovering/Resolving]
  - Tension [Recovering/Resolving]
  - Drug interaction [Unknown]

NARRATIVE: CASE EVENT DATE: 20210830
